FAERS Safety Report 13498728 (Version 4)
Quarter: 2017Q4

REPORT INFORMATION
  Report Type: Spontaneous
  Country: IR (occurrence: IR)
  Receive Date: 20170501
  Receipt Date: 20171101
  Transmission Date: 20180320
  Serious: Yes (Hospitalization, Other)
  Sender: FDA-Public Use
  Company Number: IR-SUN PHARMACEUTICAL INDUSTRIES LTD-2017RR-139317

PATIENT
  Age: 32 Year
  Sex: Female

DRUGS (3)
  1. LETROZOLE. [Suspect]
     Active Substance: LETROZOLE
     Dosage: 5 MG, DAILY, IN THE THIRD CYCLE
     Route: 065
  2. LETROZOLE. [Suspect]
     Active Substance: LETROZOLE
     Indication: OVULATION INDUCTION
     Dosage: 2.5 MG, DAILY, IN THE FIRST CYCLE
     Route: 065
  3. LETROZOLE. [Suspect]
     Active Substance: LETROZOLE
     Indication: OVULATION INDUCTION
     Dosage: 5 MG, DAILY, IN THE SECOND CYCLE
     Route: 065

REACTIONS (2)
  - Drug ineffective [Unknown]
  - Ovarian cancer [Recovered/Resolved]
